FAERS Safety Report 5190539-6 (Version None)
Quarter: 2006Q4

REPORT INFORMATION
  Report Type: 
  Country: None (occurrence: None)
  Receive Date: 20061222
  Receipt Date: 20060509
  Transmission Date: 20070319
  Serious: Yes (Other)
  Sender: FDA-Public Use
  Company Number: US-ELI_LILLY_AND_COMPANY-US200609000828

PATIENT
  Sex: Female
  Weight: 113.38 kg

DRUGS (5)
  1. GLUCOVANCE [Concomitant]
     Dates: start: 20020101, end: 20060101
  2. INSULIN [Concomitant]
     Dates: start: 20020101, end: 20030101
  3. INSULIN [Concomitant]
     Dates: start: 20060101
  4. ACTOS [Concomitant]
     Dates: start: 20020101
  5. ZYPREXA [Suspect]
     Indication: NERVOUS SYSTEM DISORDER
     Dosage: 10 MG, UNK
     Route: 065
     Dates: start: 20020115

REACTIONS (4)
  - CONDITION AGGRAVATED [None]
  - DIABETES MELLITUS [None]
  - HEPATITIS VIRAL [None]
  - PANCREATITIS [None]
